FAERS Safety Report 18428287 (Version 2)
Quarter: 2020Q4

REPORT INFORMATION
  Report Type: Spontaneous
  Country: HK (occurrence: HK)
  Receive Date: 20201026
  Receipt Date: 20201109
  Transmission Date: 20210114
  Serious: Yes (Other)
  Sender: FDA-Public Use
  Company Number: HK-INCYTE CORPORATION-2020IN010351

PATIENT

DRUGS (11)
  1. JAKAVI [Suspect]
     Active Substance: RUXOLITINIB
     Indication: PRODUCT USED FOR UNKNOWN INDICATION
     Dosage: 10 MG
     Route: 065
     Dates: start: 20180227
  2. JAKAVI [Suspect]
     Active Substance: RUXOLITINIB
     Dosage: 5 MG, QD
     Route: 065
  3. SIROLIMUS. [Suspect]
     Active Substance: SIROLIMUS
     Indication: PRODUCT USED FOR UNKNOWN INDICATION
     Dosage: UNK
     Route: 065
     Dates: start: 20181016
  4. CYCLOSPORINE. [Suspect]
     Active Substance: CYCLOSPORINE
     Indication: PRODUCT USED FOR UNKNOWN INDICATION
     Dosage: 180 MG, BID
     Route: 065
  5. CYCLOSPORINE. [Suspect]
     Active Substance: CYCLOSPORINE
     Dosage: 2.5 G
     Route: 065
     Dates: start: 20181016
  6. MYCOPHENOLATE MOFETIL. [Suspect]
     Active Substance: MYCOPHENOLATE MOFETIL
     Indication: PRODUCT USED FOR UNKNOWN INDICATION
     Dosage: 2 G, BID
     Route: 065
  7. CYCLOSPORINE. [Suspect]
     Active Substance: CYCLOSPORINE
     Dosage: 1.25 G
     Route: 065
     Dates: start: 20180227
  8. PREDNISOLONE. [Suspect]
     Active Substance: PREDNISOLONE
     Dosage: 8 MG
     Route: 065
     Dates: start: 20180227
  9. PREDNISOLONE. [Suspect]
     Active Substance: PREDNISOLONE
     Indication: PRODUCT USED FOR UNKNOWN INDICATION
     Dosage: 1 MG/KG
     Route: 065
  10. PREDNISOLONE. [Suspect]
     Active Substance: PREDNISOLONE
     Dosage: 25 MG
     Route: 065
     Dates: start: 20181016
  11. SIROLIMUS. [Suspect]
     Active Substance: SIROLIMUS
     Dosage: UNK
     Route: 065
     Dates: start: 20180227

REACTIONS (17)
  - Cataract [Unknown]
  - Cushing^s syndrome [Unknown]
  - Dyspnoea exertional [Unknown]
  - Mycoplasma infection [Unknown]
  - Cytogenetic response [Unknown]
  - Hypertension [Unknown]
  - Graft versus host disease [Unknown]
  - Drug ineffective [Unknown]
  - Organising pneumonia [Unknown]
  - Arteriosclerosis [Unknown]
  - Liver disorder [Unknown]
  - Mucocutaneous disorder [Unknown]
  - Chronic graft versus host disease [Unknown]
  - Poikiloderma [Unknown]
  - Chronic myeloid leukaemia [Unknown]
  - Hyperlipidaemia [Unknown]
  - Rhinorrhoea [Unknown]

NARRATIVE: CASE EVENT DATE: 201303
